FAERS Safety Report 8880104 (Version 1)
Quarter: 2012Q4

REPORT INFORMATION
  Report Type: 
  Country: US (occurrence: US)
  Receive Date: 20121101
  Receipt Date: 20121101
  Transmission Date: 20130627
  Serious: No
  Sender: FDA-Public Use
  Company Number: US-TARO-2012P1032066

PATIENT
  Age: 96 Year
  Sex: Female

DRUGS (1)
  1. PHENYTOIN SODIUM EXTENDED CAPSULES USP 100MG [Suspect]

REACTIONS (2)
  - Vomiting [Unknown]
  - Dysphagia [Unknown]
